FAERS Safety Report 15722869 (Version 2)
Quarter: 2022Q3

REPORT INFORMATION
  Report Type: Spontaneous
  Country: FR (occurrence: FR)
  Receive Date: 20181214
  Receipt Date: 20220722
  Transmission Date: 20221026
  Serious: Yes (Hospitalization, Other)
  Sender: FDA-Public Use
  Company Number: None

PATIENT
  Age: 16 Year
  Sex: Female
  Weight: 53.1 kg

DRUGS (3)
  1. FLURBIPROFEN [Suspect]
     Active Substance: FLURBIPROFEN
     Indication: Dysmenorrhoea
     Route: 048
     Dates: start: 20181111, end: 20181112
  2. PHLOROGLUCINOL [Suspect]
     Active Substance: PHLOROGLUCINOL
     Indication: Dysmenorrhoea
     Route: 048
     Dates: start: 20181111
  3. BILASTINE [Suspect]
     Active Substance: BILASTINE
     Indication: Hypersensitivity
     Dosage: 1 DOSAGE FORMS DAILY;
     Route: 048
     Dates: start: 20181116

REACTIONS (2)
  - Acute kidney injury [Recovered/Resolved]
  - Acute kidney injury [Recovered/Resolved]

NARRATIVE: CASE EVENT DATE: 20181116
